FAERS Safety Report 18077999 (Version 1)
Quarter: 2020Q3

REPORT INFORMATION
  Report Type: Spontaneous
  Country: US (occurrence: US)
  Receive Date: 20200727
  Receipt Date: 20200727
  Transmission Date: 20201103
  Serious: No
  Sender: FDA-Public Use
  Company Number: US-SEATTLE GENETICS-2020SGN02186

PATIENT
  Sex: Female

DRUGS (4)
  1. TUKYSA [Suspect]
     Active Substance: TUCATINIB
     Indication: BREAST CANCER
  2. TUKYSA [Suspect]
     Active Substance: TUCATINIB
     Indication: BREAST CANCER
  3. TUKYSA [Suspect]
     Active Substance: TUCATINIB
     Indication: BREAST CANCER FEMALE
  4. CAPECITABINE. [Concomitant]
     Active Substance: CAPECITABINE
     Indication: BREAST CANCER
     Dosage: 500 MG
     Route: 048

REACTIONS (10)
  - Abdominal discomfort [Unknown]
  - Contusion [Unknown]
  - Balance disorder [Unknown]
  - Feeling abnormal [Unknown]
  - Rash macular [Unknown]
  - Back disorder [Unknown]
  - Muscle spasms [Unknown]
  - Nausea [Unknown]
  - Fall [Unknown]
  - Fatigue [Unknown]
